FAERS Safety Report 10064298 (Version 3)
Quarter: 2014Q2

REPORT INFORMATION
  Report Type: Report from Study
  Country: US (occurrence: US)
  Receive Date: 20140408
  Receipt Date: 20140409
  Transmission Date: 20141212
  Serious: Yes (Hospitalization)
  Sender: FDA-Public Use
  Company Number: US-ROCHE-1362933

PATIENT
  Age: 32 Year
  Sex: Female
  Weight: 93.52 kg

DRUGS (20)
  1. OMALIZUMAB [Suspect]
     Indication: ASTHMA
     Dosage: MOST RECENT DOSE WAS ON 30/DEC/2013.
     Route: 065
  2. OMALIZUMAB [Suspect]
     Route: 065
     Dates: start: 201311
  3. OMALIZUMAB [Suspect]
     Route: 065
     Dates: start: 20131204
  4. OMALIZUMAB [Suspect]
     Route: 065
     Dates: start: 20131216
  5. OMALIZUMAB [Suspect]
     Route: 065
     Dates: start: 20131230, end: 20131230
  6. ALLEGRA [Concomitant]
  7. ZYRTEC [Concomitant]
  8. ADVAIR [Concomitant]
     Indication: ASTHMA
  9. NASACORT [Concomitant]
  10. QVAR [Concomitant]
     Indication: ASTHMA
  11. PREDNISOLON [Concomitant]
     Indication: ASTHMA
  12. IMMUNOTHERAPY (UNK ANTIGEN) [Concomitant]
  13. LOVENOX [Concomitant]
  14. LABETALOL [Concomitant]
  15. BABY ASPIRIN [Concomitant]
     Route: 048
  16. BYSTOLIC [Concomitant]
     Indication: HYPERTENSION
  17. PREDNISONE [Concomitant]
     Indication: ASTHMA
  18. NIFEDICAL [Concomitant]
     Indication: THROMBOSIS
     Route: 048
  19. FOLIC ACID [Concomitant]
  20. HUMULIN INSULIN [Concomitant]
     Indication: BLOOD GLUCOSE INCREASED
     Dosage: 15 UNIT
     Route: 058

REACTIONS (2)
  - Pregnancy [Unknown]
  - Asthma [Recovered/Resolved]
